FAERS Safety Report 10067589 (Version 1)
Quarter: 2014Q2

REPORT INFORMATION
  Report Type: Spontaneous
  Country: US (occurrence: US)
  Receive Date: 20140409
  Receipt Date: 20140409
  Transmission Date: 20141212
  Serious: No
  Sender: FDA-Public Use
  Company Number: US-009507513-1404USA003437

PATIENT
  Sex: Male

DRUGS (1)
  1. CORICIDIN HBP NIGHTTIME MULTI-SYMPTOM LIQUID [Suspect]
     Indication: PRODUCT USED FOR UNKNOWN INDICATION
     Dosage: 1.5 DF, UNKNOWN
     Route: 048

REACTIONS (3)
  - Somnolence [Unknown]
  - Overdose [Unknown]
  - Product quality issue [Unknown]
